FAERS Safety Report 5384003-9 (Version None)
Quarter: 2007Q3

REPORT INFORMATION
  Report Type: 
  Country: None (occurrence: None)
  Receive Date: 20070711
  Receipt Date: 20070703
  Transmission Date: 20080115
  Serious: Yes (Hospitalization)
  Sender: FDA-Public Use
  Company Number: AU-AVENTIS-200713290EU

PATIENT
  Age: 77 Year
  Sex: Male
  Weight: 104 kg

DRUGS (11)
  1. LASIX [Suspect]
     Indication: PLEURAL EFFUSION
  2. TELMISARTAN [Suspect]
  3. TRANDOLAPRIL [Suspect]
  4. VERAPAMIL [Suspect]
  5. PRAZOSIN HCL [Suspect]
  6. ALDACTONE [Suspect]
     Indication: PLEURAL EFFUSION
  7. LIPIDIL [Concomitant]
  8. WARFARIN SODIUM [Concomitant]
  9. GEMFIBROZIL [Concomitant]
  10. ATORVASTATIN [Concomitant]
  11. ALLOPURINOL [Concomitant]

REACTIONS (3)
  - BRADYCARDIA [None]
  - CIRCULATORY COLLAPSE [None]
  - RENAL FAILURE ACUTE [None]
